FAERS Safety Report 8267165-5 (Version None)
Quarter: 2012Q2

REPORT INFORMATION
  Report Type: 
  Country: None (occurrence: None)
  Receive Date: 20120404
  Receipt Date: 20120327
  Transmission Date: 20120825
  Serious: Yes (Other)
  Sender: FDA-Public Use
  Company Number: AUR-APL-2012-01600

PATIENT
  Age: 42 Year
  Sex: Female
  Weight: 43.54 kg

DRUGS (8)
  1. VITAMIN B SUBSTANCES (DAGRAVIT B-COMPLEX /02947301/) [Concomitant]
  2. FLUOXETINE [Suspect]
     Indication: PRODUCT USED FOR UNKNOWN INDICATION
     Dates: start: 20120103
  3. LANTUS [Concomitant]
  4. LORATADINE [Concomitant]
  5. MORPHINE SULFATE [Concomitant]
  6. SALAMOL (SALBUTANOL) [Concomitant]
  7. TRAMADOL HCL [Concomitant]
  8. ACETAMINOPHEN [Concomitant]

REACTIONS (2)
  - ABDOMINAL PAIN UPPER [None]
  - CONDITION AGGRAVATED [None]
